FAERS Safety Report 11952673 (Version 1)
Quarter: 2016Q1

REPORT INFORMATION
  Report Type: Spontaneous
  Country: FR (occurrence: FR)
  Receive Date: 20160125
  Receipt Date: 20160125
  Transmission Date: 20160526
  Serious: Yes (Other)
  Sender: FDA-Public Use
  Company Number: FR-ABBVIE-09P-056-0562142-00

PATIENT
  Sex: Male

DRUGS (4)
  1. INDINAVIR SULFATE [Suspect]
     Active Substance: INDINAVIR SULFATE
     Indication: PATERNAL DRUGS AFFECTING FOETUS
     Route: 050
  2. STAVUDINE. [Suspect]
     Active Substance: STAVUDINE
     Indication: PATERNAL DRUGS AFFECTING FOETUS
     Route: 050
  3. ABACAVIR SULFATE. [Suspect]
     Active Substance: ABACAVIR SULFATE
     Indication: PATERNAL DRUGS AFFECTING FOETUS
     Route: 050
  4. NORVIR [Suspect]
     Active Substance: RITONAVIR
     Indication: PATERNAL DRUGS AFFECTING FOETUS
     Route: 050

REACTIONS (4)
  - Premature baby [Unknown]
  - Foetal exposure during pregnancy [Unknown]
  - Exposure via father [Unknown]
  - Foetal growth restriction [Unknown]
